FAERS Safety Report 12717237 (Version 2)
Quarter: 2016Q4

REPORT INFORMATION
  Report Type: Spontaneous
  Country: US (occurrence: US)
  Receive Date: 20160906
  Receipt Date: 20161027
  Transmission Date: 20170207
  Serious: Yes (Death)
  Sender: FDA-Public Use
  Company Number: US-INSYS THERAPEUTICS, INC-INS201608-000444

PATIENT
  Age: 35 Year
  Sex: Male
  Weight: 158.3 kg

DRUGS (10)
  1. MORPHINE [Concomitant]
     Active Substance: MORPHINE
     Indication: CROHN^S DISEASE
  2. SUBSYS [Suspect]
     Active Substance: FENTANYL
     Indication: CROHN^S DISEASE
     Route: 060
  3. COCAINE [Suspect]
     Active Substance: COCAINE
  4. MORPHINE [Concomitant]
     Active Substance: MORPHINE
  5. ZOLPIDEM [Concomitant]
     Active Substance: ZOLPIDEM\ZOLPIDEM TARTRATE
  6. AMBIEN [Concomitant]
     Active Substance: ZOLPIDEM TARTRATE
     Indication: CROHN^S DISEASE
  7. LISINOPRIL. [Concomitant]
     Active Substance: LISINOPRIL
  8. OXYCODONE [Concomitant]
     Active Substance: OXYCODONE
     Indication: CROHN^S DISEASE
  9. OXYCODONE [Concomitant]
     Active Substance: OXYCODONE
  10. DICYCLOMINE [Concomitant]
     Active Substance: DICYCLOMINE HYDROCHLORIDE

REACTIONS (1)
  - Toxicity to various agents [Fatal]

NARRATIVE: CASE EVENT DATE: 20160821
